FAERS Safety Report 18221257 (Version 1)
Quarter: 2020Q3

REPORT INFORMATION
  Report Type: Spontaneous
  Country: US (occurrence: US)
  Receive Date: 20200901
  Receipt Date: 20200901
  Transmission Date: 20201103
  Serious: Yes (Hospitalization)
  Sender: FDA-Public Use
  Company Number: None

PATIENT
  Age: 58 Year
  Sex: Female

DRUGS (6)
  1. DICLOFENAC [Concomitant]
     Active Substance: DICLOFENAC
     Dates: start: 20200831
  2. ENBREL [Suspect]
     Active Substance: ETANERCEPT
     Indication: PSORIATIC ARTHROPATHY
     Dosage: ?          OTHER FREQUENCY:EVERY WEEK;?
     Route: 058
     Dates: start: 20190518
  3. METOPROL TAR [Concomitant]
     Dates: start: 20200831
  4. CYCLOBENZAPR [Concomitant]
     Active Substance: CYCLOBENZAPRINE
     Dates: start: 20200831
  5. CHLORTHALID [Concomitant]
     Active Substance: CHLORTHALIDONE
     Dates: start: 20200831
  6. TRAMADOL HCL [Concomitant]
     Active Substance: TRAMADOL HYDROCHLORIDE
     Dates: start: 20200831

REACTIONS (6)
  - Musculoskeletal stiffness [None]
  - Psoriasis [None]
  - Spinal laminectomy [None]
  - Injection site pain [None]
  - Synovial cyst [None]
  - Pain [None]

NARRATIVE: CASE EVENT DATE: 20200720
